FAERS Safety Report 8236462-1 (Version None)
Quarter: 2012Q1

REPORT INFORMATION
  Report Type: 
  Country: None (occurrence: None)
  Receive Date: 20120327
  Receipt Date: 20120319
  Transmission Date: 20120608
  Serious: Yes (Hospitalization)
  Sender: FDA-Public Use
  Company Number: US-BAYER-2011-013948

PATIENT
  Age: 23 Year
  Sex: Female
  Weight: 86 kg

DRUGS (3)
  1. YASMIN [Suspect]
     Indication: CONTRACEPTION
     Dosage: UNK
     Route: 048
     Dates: start: 20041115, end: 20060506
  2. HYOSCYAMINE [Concomitant]
     Dosage: 0.125 MG, UNK
  3. OMEPRAZOLE [Concomitant]
     Dosage: 20 MG, UNK

REACTIONS (10)
  - BILIARY DYSKINESIA [None]
  - PAIN [None]
  - PULMONARY EMBOLISM [None]
  - EMOTIONAL DISTRESS [None]
  - GALLBLADDER INJURY [None]
  - PULMONARY INFARCTION [None]
  - CHOLECYSTITIS CHRONIC [None]
  - ATELECTASIS [None]
  - INJURY [None]
  - ANXIETY [None]
